FAERS Safety Report 8586867-4 (Version None)
Quarter: 2012Q3

REPORT INFORMATION
  Report Type: 
  Country: None (occurrence: None)
  Receive Date: 20120810
  Receipt Date: 20120727
  Transmission Date: 20120928
  Serious: Yes (Other)
  Sender: FDA-Public Use
  Company Number: CHPA2012US016977

PATIENT
  Age: 67 Year
  Sex: Female

DRUGS (2)
  1. MAALOX PLUS / ANTACID ANTI-GAS [Suspect]
     Dosage: UNK, UNK
     Route: 048
     Dates: start: 20120101
  2. MAALOX PLUS / ANTACID ANTI-GAS [Suspect]
     Indication: GASTROOESOPHAGEAL REFLUX DISEASE
     Dosage: 4 TSP, BID
     Route: 048
     Dates: start: 20120727, end: 20120728

REACTIONS (5)
  - EAR PAIN [None]
  - HIATUS HERNIA [None]
  - HEADACHE [None]
  - CHEST PAIN [None]
  - EXPIRED DRUG ADMINISTERED [None]
